FAERS Safety Report 7112716-7 (Version None)
Quarter: 2010Q4

REPORT INFORMATION
  Report Type: 
  Country: None (occurrence: None)
  Receive Date: 20101119
  Receipt Date: 20101109
  Transmission Date: 20110411
  Serious: Yes (Other)
  Sender: FDA-Public Use
  Company Number: PHHY2010US76243

PATIENT
  Age: 31 Year
  Sex: Female

DRUGS (2)
  1. CARBAMAZEPINE [Suspect]
     Indication: CONVULSION
  2. PHENOBARBITAL [Concomitant]
     Indication: CONVULSION

REACTIONS (6)
  - CHOLELITHIASIS [None]
  - FATIGUE [None]
  - HEPATIC FIBROSIS [None]
  - LIVER FUNCTION TEST ABNORMAL [None]
  - PRURITUS [None]
  - VANISHING BILE DUCT SYNDROME [None]
